FAERS Safety Report 5900535-6 (Version None)
Quarter: 2008Q3

REPORT INFORMATION
  Report Type: 
  Country: None (occurrence: None)
  Receive Date: 20080926
  Receipt Date: 20080911
  Transmission Date: 20090109
  Serious: No
  Sender: FDA-Public Use
  Company Number: US-B.I. PHARMACEUTICALS,INC./RIDGEFIELD-2008-BP-12780BP

PATIENT
  Age: 76 Year
  Sex: Female

DRUGS (4)
  1. SPIRIVA [Suspect]
     Indication: TOTAL LUNG CAPACITY DECREASED
     Dosage: 18MCG
     Route: 055
     Dates: start: 20060101
  2. PEPCID [Concomitant]
     Indication: HIATUS HERNIA
     Route: 048
  3. PREMARIN [Concomitant]
     Indication: OESTROGEN REPLACEMENT THERAPY
     Route: 048
  4. ACIPHEX [Concomitant]
     Indication: HIATUS HERNIA
     Dosage: 20MG
     Route: 048

REACTIONS (4)
  - DIARRHOEA [None]
  - DYSPHONIA [None]
  - ERUCTATION [None]
  - FLATULENCE [None]
